FAERS Safety Report 8276349-1 (Version None)
Quarter: 2012Q2

REPORT INFORMATION
  Report Type: 
  Country: None (occurrence: None)
  Receive Date: 20120412
  Receipt Date: 20120403
  Transmission Date: 20120825
  Serious: Yes (Hospitalization)
  Sender: FDA-Public Use
  Company Number: NL-JNJFOC-20120402609

PATIENT
  Sex: Female

DRUGS (7)
  1. PANTOPRAZOLE [Concomitant]
     Dates: start: 20050101
  2. RISEDRONATE SODIUM [Concomitant]
     Dates: start: 20000101
  3. FORADIL [Concomitant]
     Dates: start: 20000101
  4. CETIRIZINE HCL [Concomitant]
     Dates: start: 20050101
  5. ALVESCO [Concomitant]
     Dates: start: 20050101
  6. XARELTO [Suspect]
     Indication: ATRIAL FIBRILLATION
     Route: 048
     Dates: start: 20120306, end: 20120313
  7. ACTONEL [Concomitant]
     Dates: start: 20000101

REACTIONS (6)
  - ARRHYTHMIA [None]
  - HYPERHIDROSIS [None]
  - PULSE ABSENT [None]
  - BODY TEMPERATURE INCREASED [None]
  - HYPERTENSION [None]
  - FREQUENT BOWEL MOVEMENTS [None]
